FAERS Safety Report 23436699 (Version 2)
Quarter: 2024Q4

REPORT INFORMATION
  Report Type: Report from Study
  Country: EG (occurrence: EG)
  Receive Date: 20240124
  Receipt Date: 20241226
  Transmission Date: 20250115
  Serious: Yes (Hospitalization)
  Sender: SANDOZ
  Company Number: EG-002147023-NVSC2022EG174897

PATIENT
  Age: 8 Year
  Sex: Male
  Weight: 29 kg

DRUGS (6)
  1. OMNITROPE [Suspect]
     Active Substance: SOMATROPIN
     Indication: Growth hormone deficiency
     Dosage: 0.9 MG, QD
     Route: 058
     Dates: start: 20220627
  2. OMNITROPE [Suspect]
     Active Substance: SOMATROPIN
     Dosage: 2 YEARS
     Route: 058
  3. Ferroglobin [Concomitant]
     Indication: Nutritional supplementation
     Dosage: 5 ML, QD
     Route: 048
     Dates: start: 20220627
  4. OSTEOCARE [Concomitant]
     Active Substance: CALCIUM\CHOLECALCIFEROL\MAGNESIUM\ZINC
     Indication: Nutritional supplementation
     Dosage: 5 ML, QD
     Route: 048
     Dates: start: 20220627
  5. VIDROP [Concomitant]
     Indication: Nutritional supplementation
     Dosage: 1 DROPPER, QD
     Route: 048
     Dates: start: 20220627
  6. ZINC [Concomitant]
     Active Substance: ZINC
     Indication: Nutritional supplementation
     Dosage: 5 ML, QD
     Route: 048
     Dates: start: 20220627

REACTIONS (5)
  - Deformity [Unknown]
  - Rhinorrhoea [Unknown]
  - Pyrexia [Unknown]
  - Product dose omission issue [Not Recovered/Not Resolved]
  - Off label use [Unknown]

NARRATIVE: CASE EVENT DATE: 20220726
